FAERS Safety Report 6467284-X (Version None)
Quarter: 2009Q4

REPORT INFORMATION
  Report Type: 
  Country: None (occurrence: None)
  Receive Date: 20091130
  Receipt Date: 20091112
  Transmission Date: 20100525
  Serious: Yes (Other)
  Sender: FDA-Public Use
  Company Number: 8054686

PATIENT
  Age: 48 Year
  Sex: Male

DRUGS (1)
  1. CIMZIA [Suspect]
     Indication: CROHN'S DISEASE
     Dosage: 400 MG/ M SC
     Route: 058
     Dates: start: 20090108

REACTIONS (4)
  - DEVICE RELATED INFECTION [None]
  - DISEASE RECURRENCE [None]
  - INTESTINAL STENOSIS [None]
  - STAPHYLOCOCCAL INFECTION [None]
